FAERS Safety Report 12163438 (Version 1)
Quarter: 2016Q1

REPORT INFORMATION
  Report Type: Spontaneous
  Country: US (occurrence: US)
  Receive Date: 20160309
  Receipt Date: 20160309
  Transmission Date: 20160526
  Serious: No
  Sender: FDA-Public Use
  Company Number: US-ROCHE-1555977

PATIENT
  Sex: Female

DRUGS (6)
  1. IPRATROPIUM INHALER [Concomitant]
     Active Substance: IPRATROPIUM BROMIDE
     Dosage: AS REQUIRED
     Route: 045
  2. AFRIN (OXYMETAZOLINE) [Concomitant]
     Dosage: AS REQUIRED
     Route: 045
  3. COMBIVENT [Concomitant]
     Active Substance: ALBUTEROL SULFATE\IPRATROPIUM BROMIDE
     Route: 045
  4. XOLAIR [Suspect]
     Active Substance: OMALIZUMAB
     Indication: ASTHMA
     Dosage: STARTED 3 YEARS AGO
     Route: 058
  5. ZYFLO CR [Concomitant]
     Active Substance: ZILEUTON
     Route: 048
  6. ACIDOPHILUS [Concomitant]
     Active Substance: LACTOBACILLUS ACIDOPHILUS
     Route: 048

REACTIONS (1)
  - Burning sensation [Not Recovered/Not Resolved]
